FAERS Safety Report 8007720-0 (Version None)
Quarter: 2011Q4

REPORT INFORMATION
  Report Type: 
  Country: None (occurrence: None)
  Receive Date: 20111227
  Receipt Date: 20111213
  Transmission Date: 20120403
  Serious: Yes (Other)
  Sender: FDA-Public Use
  Company Number: FR-ELI_LILLY_AND_COMPANY-FR201108003125

PATIENT
  Age: 74 Year
  Sex: Female
  Weight: 52 kg

DRUGS (10)
  1. DIAZEPAM [Concomitant]
     Dosage: 2 DF, QD
  2. NEXIUM [Concomitant]
     Route: 048
  3. DILTIAZEM HCL [Concomitant]
     Dosage: 200 MG, UNK
     Route: 048
  4. MEPRONIZINE [Concomitant]
     Route: 048
  5. EFFERALGAN                         /00020001/ [Concomitant]
     Route: 048
  6. METEOXANE [Concomitant]
     Route: 048
  7. FORTEO [Suspect]
     Indication: OSTEOPOROSIS
     Dosage: 20 UG, QD
     Route: 058
     Dates: end: 20110930
  8. DOMPERIDONE [Concomitant]
     Route: 048
  9. ATORVASTATIN CALCIUM [Concomitant]
     Dosage: 10 MG, UNK
     Route: 048
  10. ESCITALOPRAM OXALATE [Concomitant]
     Dosage: 2 DF, QD
     Route: 048

REACTIONS (5)
  - NEURALGIA [None]
  - GALLBLADDER PAIN [None]
  - PAIN IN EXTREMITY [None]
  - CHOLELITHIASIS [None]
  - ASTHENIA [None]
